FAERS Safety Report 23635782 (Version 1)
Quarter: 2024Q1

REPORT INFORMATION
  Report Type: Spontaneous
  Country: US (occurrence: US)
  Receive Date: 20240315
  Receipt Date: 20240315
  Transmission Date: 20240410
  Serious: No
  Sender: FDA-Public Use
  Company Number: US-TEVA-VS-3146021

PATIENT
  Age: 49 Year
  Sex: Female

DRUGS (1)
  1. FREMANEZUMAB [Suspect]
     Active Substance: FREMANEZUMAB
     Indication: Migraine
     Dosage: DOSAGE	1.5
     Route: 065
     Dates: start: 20230801

REACTIONS (2)
  - Dizziness [Recovered/Resolved]
  - Device issue [Unknown]
